FAERS Safety Report 7429042-9 (Version None)
Quarter: 2011Q2

REPORT INFORMATION
  Report Type: 
  Country: None (occurrence: None)
  Receive Date: 20110414
  Receipt Date: 20110412
  Transmission Date: 20111010
  Serious: Yes (Hospitalization)
  Sender: FDA-Public Use
  Company Number: 1000018637

PATIENT
  Age: 73 Year
  Sex: Female

DRUGS (3)
  1. PREVACID (LANSOPRAZOLE) (LANSOPRAZOLE) [Concomitant]
  2. BYSTOLIC [Suspect]
     Indication: HYPERTENSION
     Dosage: 5 MG (5 MG,1 IN 1 D),ORAL
     Route: 048
     Dates: start: 20101214, end: 20110114
  3. CELECOXIB [Concomitant]

REACTIONS (6)
  - BRONCHITIS [None]
  - HYPERTENSIVE CRISIS [None]
  - CARDIAC FAILURE CONGESTIVE [None]
  - BRAIN NATRIURETIC PEPTIDE INCREASED [None]
  - SINUSITIS [None]
  - BRADYCARDIA [None]
